FAERS Safety Report 5403499-7 (Version None)
Quarter: 2007Q3

REPORT INFORMATION
  Report Type: 
  Country: None (occurrence: None)
  Receive Date: 20070713
  Receipt Date: 20070314
  Transmission Date: 20080115
  Serious: Yes (Hospitalization, Other)
  Sender: FDA-Public Use
  Company Number: US-JNJFOC-20060601756

PATIENT
  Age: 39 Year
  Sex: Female
  Weight: 103.4201 kg

DRUGS (11)
  1. ORTHO EVRA [Suspect]
     Indication: POLYMENORRHOEA
     Dosage: TRANSDERMAL
     Route: 062
     Dates: start: 20021101, end: 20021201
  2. PREDNISONE TAB [Concomitant]
  3. REMICADE [Concomitant]
  4. PAMELOR [Concomitant]
  5. PROTONIX [Concomitant]
  6. METHOTREXATE [Concomitant]
  7. FOLIC ACID [Concomitant]
  8. PHENERGAN [Concomitant]
  9. IMMODIUM (LOPERAMIDE HYDROCHLORIDE) [Concomitant]
  10. LORTAB [Concomitant]
  11. B12 (CYANOCOBALAMIN) [Concomitant]

REACTIONS (3)
  - AXILLARY VEIN THROMBOSIS [None]
  - JUGULAR VEIN THROMBOSIS [None]
  - THROMBOSIS [None]
